FAERS Safety Report 16853201 (Version 4)
Quarter: 2024Q1

REPORT INFORMATION
  Report Type: Spontaneous
  Country: US (occurrence: US)
  Receive Date: 20190925
  Receipt Date: 20240101
  Transmission Date: 20240410
  Serious: Yes (Hospitalization, Other)
  Sender: FDA-Public Use
  Company Number: US-GILEAD-2019-0429796

PATIENT
  Age: 37 Year
  Sex: Male
  Weight: 74.83 kg

DRUGS (35)
  1. TRUVADA [Suspect]
     Active Substance: EMTRICITABINE\TENOFOVIR DISOPROXIL FUMARATE
     Indication: HIV infection
     Dosage: UNK
     Route: 048
     Dates: start: 2010
  2. TRUVADA [Suspect]
     Active Substance: EMTRICITABINE\TENOFOVIR DISOPROXIL FUMARATE
     Dosage: UNK
     Route: 048
     Dates: start: 2014, end: 2017
  3. TRUVADA [Suspect]
     Active Substance: EMTRICITABINE\TENOFOVIR DISOPROXIL FUMARATE
     Dosage: UNK
     Route: 048
     Dates: start: 20151103, end: 2017
  4. VIREAD [Suspect]
     Active Substance: TENOFOVIR DISOPROXIL FUMARATE
     Indication: HIV infection
     Dosage: UNK
     Route: 065
     Dates: start: 2018
  5. ATRIPLA [Suspect]
     Active Substance: EFAVIRENZ\EMTRICITABINE\TENOFOVIR DISOPROXIL FUMARATE
     Indication: HIV infection
     Dosage: UNK
     Route: 048
     Dates: start: 201302, end: 201511
  6. GABAPENTIN [Concomitant]
     Active Substance: GABAPENTIN
  7. PREZCOBIX [Concomitant]
     Active Substance: COBICISTAT\DARUNAVIR ETHANOLATE
  8. REYATAZ [Concomitant]
     Active Substance: ATAZANAVIR SULFATE
  9. TIVICAY [Concomitant]
     Active Substance: DOLUTEGRAVIR SODIUM
  10. BACTRIM [Concomitant]
     Active Substance: SULFAMETHOXAZOLE\TRIMETHOPRIM
  11. AMLODIPINE BESYLATE [Concomitant]
     Active Substance: AMLODIPINE BESYLATE
  12. HYDROCHLOROTHIAZIDE [Concomitant]
     Active Substance: HYDROCHLOROTHIAZIDE
  13. CITALOPRAM [Concomitant]
     Active Substance: CITALOPRAM HYDROBROMIDE
  14. HYDRALAZINE [Concomitant]
     Active Substance: HYDRALAZINE HYDROCHLORIDE
  15. LABETALOL [Concomitant]
     Active Substance: LABETALOL\LABETALOL HYDROCHLORIDE
  16. LAMIVUDINE [Concomitant]
     Active Substance: LAMIVUDINE
  17. LISINOPRIL [Concomitant]
     Active Substance: LISINOPRIL
  18. LORAZEPAM [Concomitant]
     Active Substance: LORAZEPAM
  19. MINOXIDIL [Concomitant]
     Active Substance: MINOXIDIL
  20. NIFEDIPINE [Concomitant]
     Active Substance: NIFEDIPINE
  21. ONDANSETRON [Concomitant]
     Active Substance: ONDANSETRON
  22. PANTOPRAZOLE [Concomitant]
     Active Substance: PANTOPRAZOLE
  23. ABACAVIR [Concomitant]
     Active Substance: ABACAVIR
  24. ATOVAQUONE [Concomitant]
     Active Substance: ATOVAQUONE
  25. DIALYVITE [Concomitant]
     Active Substance: ASCORBIC ACID\BIOTIN\CALCIUM PANTOTHENATE\COBALAMIN\FOLIC ACID\NIACINAMIDE\PYRIDOXINE HYDROCHLORIDE\
  26. NORVIR [Concomitant]
     Active Substance: RITONAVIR
  27. IMIQUAD [Concomitant]
  28. CLONIDINE [Concomitant]
     Active Substance: CLONIDINE
  29. OXYCODONE [Concomitant]
     Active Substance: OXYCODONE
  30. DOK [Concomitant]
     Active Substance: DOCUSATE SODIUM
  31. CEPHALEXIN [Concomitant]
     Active Substance: CEPHALEXIN
  32. MUPIROCIN [Concomitant]
     Active Substance: MUPIROCIN
  33. CLOBETASOL [Concomitant]
     Active Substance: CLOBETASOL
  34. VELPHORO [Concomitant]
     Active Substance: SUCROFERRIC OXYHYDROXIDE
  35. ZIAGEN [Concomitant]
     Active Substance: ABACAVIR SULFATE
     Dosage: UNK

REACTIONS (18)
  - End stage renal disease [Not Recovered/Not Resolved]
  - Seizure [Not Recovered/Not Resolved]
  - Chronic kidney disease [Not Recovered/Not Resolved]
  - Renal impairment [Unknown]
  - Hyperkalaemia [Not Recovered/Not Resolved]
  - Pneumonia [Recovered/Resolved]
  - Fatigue [Not Recovered/Not Resolved]
  - Loss of personal independence in daily activities [Not Recovered/Not Resolved]
  - Quality of life decreased [Not Recovered/Not Resolved]
  - Pain [Not Recovered/Not Resolved]
  - Emotional distress [Not Recovered/Not Resolved]
  - Anxiety [Not Recovered/Not Resolved]
  - Anhedonia [Not Recovered/Not Resolved]
  - Depression [Not Recovered/Not Resolved]
  - Anaemia [Not Recovered/Not Resolved]
  - Hyperparathyroidism secondary [Not Recovered/Not Resolved]
  - Economic problem [Not Recovered/Not Resolved]
  - Gait disturbance [Unknown]

NARRATIVE: CASE EVENT DATE: 20180101
